FAERS Safety Report 19696907 (Version 1)
Quarter: 2021Q3

REPORT INFORMATION
  Report Type: Spontaneous
  Country: NL (occurrence: NL)
  Receive Date: 20210813
  Receipt Date: 20210813
  Transmission Date: 20211014
  Serious: Yes (Life-Threatening, Hospitalization)
  Sender: FDA-Public Use
  Company Number: NL-MYLANLABS-2021M1050271

PATIENT
  Age: 56 Year
  Sex: Male

DRUGS (7)
  1. NORADRENALINE                      /00127501/ [Suspect]
     Active Substance: NOREPINEPHRINE
     Indication: HAEMODYNAMIC INSTABILITY
     Dosage: 0.6?0.8MICROGRAM PER KILOGRAM PER MINUTE
     Route: 065
  2. NORADRENALINE                      /00127501/ [Suspect]
     Active Substance: NOREPINEPHRINE
     Dosage: 1 MICROGRAM/KILOGRAM, QMINUTE
     Route: 065
  3. NORADRENALINE                      /00127501/ [Suspect]
     Active Substance: NOREPINEPHRINE
     Dosage: 1.15 MICROGRAM/KILOGRAM, QMINUTE
     Route: 065
  4. NORADRENALINE                      /00127501/ [Suspect]
     Active Substance: NOREPINEPHRINE
     Dosage: 1.75 MICROGRAM/KILOGRAM, QMINUTE
     Route: 065
  5. AMIODARONE [Suspect]
     Active Substance: AMIODARONE
     Indication: HAEMODYNAMIC INSTABILITY
     Dosage: 600 MILLIGRAM, QD
     Route: 065
  6. NORADRENALINE                      /00127501/ [Suspect]
     Active Substance: NOREPINEPHRINE
     Dosage: 1.15?1.25 MICROGRAM PER KILOGRAM PER MINUTE
     Route: 065
  7. ENOXIMONE [Suspect]
     Active Substance: ENOXIMONE
     Indication: HAEMODYNAMIC INSTABILITY
     Dosage: 1 MICROGRAM/KILOGRAM, QMINUTE
     Route: 065

REACTIONS (1)
  - Drug ineffective [Unknown]
